FAERS Safety Report 24673835 (Version 1)
Quarter: 2024Q4

REPORT INFORMATION
  Report Type: Other
  Country: PT (occurrence: PT)
  Receive Date: 20241128
  Receipt Date: 20241128
  Transmission Date: 20250115
  Serious: Yes (Other)
  Sender: ASPEN
  Company Number: PT-SA-2024SA327901

PATIENT

DRUGS (3)
  1. DEXAMETHASONE [Suspect]
     Active Substance: DEXAMETHASONE
     Indication: Retinal vein occlusion
     Dosage: IMPLANT
     Route: 031
  2. AFLIBERCEPT [Suspect]
     Active Substance: AFLIBERCEPT
     Indication: Retinal vein occlusion
     Dosage: 2 MG, 3 IVI 2Q4
     Route: 031
  3. AFLIBERCEPT [Suspect]
     Active Substance: AFLIBERCEPT
     Dosage: 2 MG, 3 IVI 2Q8
     Route: 031

REACTIONS (4)
  - Off label use [Unknown]
  - Off label use [Unknown]
  - Cataract [Recovering/Resolving]
  - Visual acuity reduced [Recovering/Resolving]
